FAERS Safety Report 17403041 (Version 1)
Quarter: 2020Q1

REPORT INFORMATION
  Report Type: Spontaneous
  Country: US (occurrence: US)
  Receive Date: 20200211
  Receipt Date: 20200211
  Transmission Date: 20200409
  Serious: No
  Sender: FDA-Public Use
  Company Number: US-AKRON, INC.-2080141

PATIENT
  Age: 11 Month

DRUGS (1)
  1. LIODCAINE/PRILOCAINE CREAM [Suspect]
     Active Substance: LIDOCAINE\PRILOCAINE

REACTIONS (2)
  - Anaesthetic complication [None]
  - Status epilepticus [None]
